FAERS Safety Report 15324869 (Version 5)
Quarter: 2018Q4

REPORT INFORMATION
  Report Type: Spontaneous
  Country: CA (occurrence: CA)
  Receive Date: 20180828
  Receipt Date: 20181227
  Transmission Date: 20190204
  Serious: Yes (Other)
  Sender: FDA-Public Use
  Company Number: CA-CELLTRION INC.-2018CA020813

PATIENT

DRUGS (10)
  1. INFLECTRA [Suspect]
     Active Substance: INFLIXIMAB-DYYB
     Indication: COLITIS ULCERATIVE
     Dosage: 800 MG,  EVERY 0, 2, 6   WEEKS, THEN EVERY 8 WEEKS)
     Route: 042
     Dates: start: 20180503, end: 20180503
  2. PREDNISONE                         /00044702/ [Concomitant]
     Active Substance: PREDNISONE
     Dosage: UNK
     Dates: start: 201804
  3. INFLECTRA [Suspect]
     Active Substance: INFLIXIMAB-DYYB
     Dosage: 800 MG,CYCLIC  EVERY 0, 2, 6   WEEKS, THEN EVERY 8 WEEKS)
     Route: 042
     Dates: start: 20180619, end: 20180619
  4. INFLECTRA [Suspect]
     Active Substance: INFLIXIMAB-DYYB
     Dosage: 800 MG, CYCLIC EVERY 0, 2, 6   WEEKS, THEN EVERY 8 WEEKS)
     Route: 042
     Dates: start: 20180619, end: 20180619
  5. INFLECTRA [Suspect]
     Active Substance: INFLIXIMAB-DYYB
     Dosage: 800 MG,CYCLIC  EVERY 0, 2, 6   WEEKS, THEN EVERY 8 WEEKS)
     Route: 042
     Dates: start: 20180815, end: 20180815
  6. INFLECTRA [Suspect]
     Active Substance: INFLIXIMAB-DYYB
     Dosage: 800 MG,CYCLIC  EVERY 0, 2, 6   WEEKS, THEN EVERY 8 WEEKS)
     Route: 042
     Dates: start: 20181010, end: 20181010
  7. INFLECTRA [Suspect]
     Active Substance: INFLIXIMAB-DYYB
     Dosage: 800 MG,  EVERY 0, 2, 6   WEEKS, THEN EVERY 8 WEEKS)
     Route: 042
     Dates: start: 20180524, end: 20180524
  8. 5-ASA [Concomitant]
     Active Substance: MESALAMINE
     Dosage: UNK
     Dates: start: 201804
  9. INFLECTRA [Suspect]
     Active Substance: INFLIXIMAB-DYYB
     Dosage: 800 MG,CYCLIC  EVERY 0, 2, 6   WEEKS, THEN EVERY 8 WEEKS)
     Route: 042
     Dates: start: 20181010, end: 20181010
  10. INFLECTRA [Suspect]
     Active Substance: INFLIXIMAB-DYYB
     Dosage: 800 MG,CYCLIC  EVERY 0, 2, 6   WEEKS, THEN EVERY 8 WEEKS)
     Route: 042
     Dates: start: 20180815, end: 20180815

REACTIONS (9)
  - Underdose [Unknown]
  - Drug ineffective [Unknown]
  - Intentional overdose [Unknown]
  - Fungal infection [Unknown]
  - Condition aggravated [Not Recovered/Not Resolved]
  - Rash [Unknown]
  - Rash pruritic [Unknown]
  - Body temperature decreased [Unknown]
  - Weight decreased [Recovered/Resolved]

NARRATIVE: CASE EVENT DATE: 20180619
